FAERS Safety Report 7449661-3 (Version None)
Quarter: 2011Q2

REPORT INFORMATION
  Report Type: 
  Country: None (occurrence: None)
  Receive Date: 20110419
  Receipt Date: 20110404
  Transmission Date: 20111010
  Serious: Yes (Death, Other)
  Sender: FDA-Public Use
  Company Number: US-2011-10219

PATIENT
  Age: 56 Year
  Sex: Female

DRUGS (6)
  1. FLUDARABINE (FLUDARABINE PHOSPHATE) [Concomitant]
  2. FILGRASTIM (FILGRASTIM) [Concomitant]
  3. TACROLIMUS [Concomitant]
  4. METHOTREXATE [Concomitant]
  5. BUSULFEX [Suspect]
     Indication: STEM CELL TRANSPLANT
  6. PHENYTOIN [Concomitant]

REACTIONS (2)
  - SEPSIS [None]
  - ACUTE GRAFT VERSUS HOST DISEASE [None]
